FAERS Safety Report 7241311-4 (Version None)
Quarter: 2011Q1

REPORT INFORMATION
  Report Type: 
  Country: None (occurrence: None)
  Receive Date: 20110124
  Receipt Date: 20110120
  Transmission Date: 20110831
  Serious: Yes (Hospitalization)
  Sender: FDA-Public Use
  Company Number: Z0002674A

PATIENT
  Age: 61 Year
  Sex: Female
  Weight: 107.7 kg

DRUGS (13)
  1. POTASSIUM CHLORIDE [Concomitant]
     Dosage: 40MEQ PER DAY
     Route: 042
     Dates: start: 20091220, end: 20091223
  2. PACLITAXEL [Suspect]
     Indication: BREAST CANCER METASTATIC
     Dosage: 100MGM2 CYCLIC
     Route: 042
     Dates: start: 20091211
  3. MORPHINE [Concomitant]
     Indication: PAIN
     Dosage: 1MG AS REQUIRED
     Route: 042
     Dates: start: 20091218, end: 20091218
  4. NEUPOGEN [Concomitant]
     Indication: FEBRILE NEUTROPENIA
     Dosage: 480MCG SINGLE DOSE
     Route: 042
     Dates: start: 20091218, end: 20091218
  5. ACETAMINOPHEN [Concomitant]
     Dosage: 650MG AS REQUIRED
     Route: 048
     Dates: start: 20091218, end: 20091224
  6. DIPHENHYDRAMINE HCL [Concomitant]
     Dosage: 25MG AS REQUIRED
     Route: 042
     Dates: start: 20091218, end: 20091224
  7. NEUPOGEN [Concomitant]
     Dosage: 480MCG AT NIGHT
     Route: 058
     Dates: start: 20091219, end: 20091220
  8. SODIUM CHLORIDE [Concomitant]
     Indication: DEHYDRATION
     Dosage: 1000ML CONTINUOUS
     Route: 042
     Dates: start: 20091218, end: 20091224
  9. POTASSIUM CHLORIDE [Concomitant]
     Indication: DEHYDRATION
     Dosage: 20MEQ SINGLE DOSE
     Route: 048
     Dates: start: 20091219, end: 20091219
  10. LAPATINIB [Suspect]
     Indication: BREAST CANCER METASTATIC
     Dosage: 1250MG PER DAY
     Route: 048
     Dates: start: 20091211
  11. ONDANSETRON HCL [Concomitant]
     Dosage: 4MG FOUR TIMES PER DAY
     Route: 042
     Dates: start: 20091218, end: 20091224
  12. DIPHENHYDRAMINE HCL [Concomitant]
     Dosage: 25MG FOUR TIMES PER DAY
     Route: 048
     Dates: start: 20091218, end: 20091224
  13. VANCOMYCIN [Concomitant]
     Indication: FEBRILE NEUTROPENIA
     Dosage: 1000MG SINGLE DOSE
     Route: 042
     Dates: start: 20091218, end: 20091218

REACTIONS (2)
  - DIARRHOEA [None]
  - FEBRILE NEUTROPENIA [None]
